FAERS Safety Report 24926872 (Version 1)
Quarter: 2025Q1

REPORT INFORMATION
  Report Type: Spontaneous
  Country: US (occurrence: US)
  Receive Date: 20250205
  Receipt Date: 20250205
  Transmission Date: 20250409
  Serious: Yes (Hospitalization, Other)
  Sender: JOHNSON AND JOHNSON
  Company Number: US-JNJFOC-20250173444

PATIENT
  Sex: Male

DRUGS (1)
  1. TECVAYLI [Suspect]
     Active Substance: TECLISTAMAB-CQYV
     Indication: Plasma cell myeloma
     Route: 058
     Dates: start: 20240401

REACTIONS (6)
  - Parainfluenzae virus infection [Recovered/Resolved]
  - Hypotension [Unknown]
  - Hypoxia [Unknown]
  - Pyrexia [Unknown]
  - Atrial fibrillation [Unknown]
  - Enterobacter bacteraemia [Unknown]

NARRATIVE: CASE EVENT DATE: 20240401
